FAERS Safety Report 10161730 (Version 1)
Quarter: 2014Q2

REPORT INFORMATION
  Report Type: Spontaneous
  Country: CN (occurrence: CN)
  Receive Date: 20140509
  Receipt Date: 20140509
  Transmission Date: 20141212
  Serious: Yes (Hospitalization)
  Sender: FDA-Public Use
  Company Number: CN-ACCORD-023511

PATIENT
  Age: 50 Year
  Sex: Female

DRUGS (1)
  1. METHYLDOPA [Suspect]
     Dosage: 300 TABLETS (} 75 GRAM )

REACTIONS (7)
  - Hypotension [Recovered/Resolved]
  - Dizziness [Unknown]
  - Somnolence [Unknown]
  - Overdose [Unknown]
  - Suicide attempt [Unknown]
  - Renal impairment [Recovered/Resolved]
  - Sinus bradycardia [Recovered/Resolved]
